APPROVED DRUG PRODUCT: CELECOXIB
Active Ingredient: CELECOXIB
Strength: 100MG
Dosage Form/Route: CAPSULE;ORAL
Application: A210071 | Product #002 | TE Code: AB
Applicant: CSPC OUYI PHARMACEUTICAL CO LTD
Approved: Jan 23, 2018 | RLD: No | RS: No | Type: RX